FAERS Safety Report 11111132 (Version 3)
Quarter: 2016Q3

REPORT INFORMATION
  Report Type: Spontaneous
  Country: DE (occurrence: US)
  Receive Date: 20150513
  Receipt Date: 20160812
  Transmission Date: 20161109
  Serious: Yes (Life-Threatening, Hospitalization, Other)
  Sender: FDA-Public Use
  Company Number: US-BRISTOL-MYERS SQUIBB COMPANY-BMS-2015-029726

PATIENT
  Age: 23 Year
  Sex: Male

DRUGS (3)
  1. VEMURAFENIB [Suspect]
     Active Substance: VEMURAFENIB
     Indication: MALIGNANT MELANOMA
     Dosage: 960 MG, QD
     Route: 065
  2. IPILIMUMAB [Suspect]
     Active Substance: IPILIMUMAB
     Indication: MALIGNANT MELANOMA
     Route: 065
  3. VEMURAFENIB [Suspect]
     Active Substance: VEMURAFENIB
     Dosage: 720 MG, QD
     Route: 065

REACTIONS (4)
  - Malignant neoplasm progression [Unknown]
  - Myocarditis [Recovered/Resolved]
  - Cardiac failure [Recovered/Resolved]
  - Uveitis [Unknown]
